FAERS Safety Report 21889087 (Version 4)
Quarter: 2023Q1

REPORT INFORMATION
  Report Type: Report from Study
  Country: US (occurrence: US)
  Receive Date: 20230120
  Receipt Date: 20230205
  Transmission Date: 20230418
  Serious: Yes (Hospitalization, Other)
  Sender: FDA-Public Use
  Company Number: US-ABBVIE-4276900

PATIENT
  Age: 69 Year
  Sex: Male
  Weight: 114.7 kg

DRUGS (3)
  1. HUMIRA [Suspect]
     Active Substance: ADALIMUMAB
     Indication: Psoriatic arthropathy
     Dosage: CITRATE FREE?START DATE TEXT: -JUN-2022 OR -JUL-2022
     Route: 058
     Dates: end: 20221207
  2. HUMIRA [Suspect]
     Active Substance: ADALIMUMAB
     Dosage: CITRATE FREE?STOP DATE TEXT: -JUN-2022 OR -JUL-2022
     Route: 058
     Dates: start: 2018
  3. METHOTREXATE [Concomitant]
     Active Substance: METHOTREXATE
     Indication: Psoriatic arthropathy

REACTIONS (10)
  - Staphylococcal abscess [Recovering/Resolving]
  - Confusional state [Recovering/Resolving]
  - Immunodeficiency [Unknown]
  - Stress [Unknown]
  - Atypical mycobacterial pneumonia [Not Recovered/Not Resolved]
  - Vomiting [Recovered/Resolved]
  - Urinary incontinence [Unknown]
  - Choking [Recovering/Resolving]
  - Food allergy [Unknown]
  - Oesophageal disorder [Unknown]

NARRATIVE: CASE EVENT DATE: 20221201
